FAERS Safety Report 6347930-1 (Version None)
Quarter: 2009Q3

REPORT INFORMATION
  Report Type: 
  Country: None (occurrence: None)
  Receive Date: 20090910
  Receipt Date: 20090831
  Transmission Date: 20100115
  Serious: Yes (Other)
  Sender: FDA-Public Use
  Company Number: PHEH2009US05617

PATIENT
  Sex: Male
  Weight: 72.109 kg

DRUGS (5)
  1. TEKTURNA [Suspect]
     Indication: HYPERTENSION
     Dosage: 150 MG, QD
     Dates: start: 20090425, end: 20090515
  2. MICARDIS [Suspect]
     Dosage: UNK, UNK
  3. TOPROL-XL [Suspect]
     Dosage: UNK, UNK
  4. LASIX [Concomitant]
     Dosage: UNK
  5. METOPROLOL TARTRATE [Concomitant]
     Dosage: UNK

REACTIONS (2)
  - MACULAR DEGENERATION [None]
  - VISION BLURRED [None]
